FAERS Safety Report 4344379-8 (Version None)
Quarter: 2004Q2

REPORT INFORMATION
  Report Type: 
  Country: None (occurrence: None)
  Receive Date: 20040420
  Receipt Date: 20040407
  Transmission Date: 20050107
  Serious: Yes (Hospitalization)
  Sender: FDA-Public Use
  Company Number: 2004208323SE

PATIENT
  Sex: Female

DRUGS (2)
  1. FRAGMIN [Suspect]
     Indication: DEEP VEIN THROMBOSIS
     Dates: start: 20030101
  2. TINZAPARIN SODIUM (HEPARIN-FRACTION, SODIUM SALT) [Suspect]
     Indication: DEEP VEIN THROMBOSIS
     Dates: start: 20030101

REACTIONS (4)
  - CONGENITAL GENITOURINARY ABNORMALITY [None]
  - DRUG EXPOSURE DURING PREGNANCY [None]
  - OVARIAN CYST [None]
  - PLACENTAL INSUFFICIENCY [None]
